FAERS Safety Report 5023373-8 (Version None)
Quarter: 2006Q2

REPORT INFORMATION
  Report Type: 
  Country: None (occurrence: None)
  Receive Date: 20060501
  Receipt Date: 20050708
  Transmission Date: 20061013
  Serious: No
  Sender: FDA-Public Use
  Company Number: HQWYE177713JUL05

PATIENT
  Sex: 0

DRUGS (1)
  1. PROTONIX [Suspect]
     Dosage: 15 MINUTE INFUSION, INTRAVENOUS
     Route: 042

REACTIONS (1)
  - INFUSION SITE ERYTHEMA [None]
